FAERS Safety Report 25721532 (Version 1)
Quarter: 2025Q3

REPORT INFORMATION
  Report Type: Spontaneous
  Country: US (occurrence: None)
  Receive Date: 20250823
  Receipt Date: 20250823
  Transmission Date: 20251020
  Serious: Yes (Disabling)
  Sender: FDA-CTU
  Company Number: None

PATIENT
  Age: 61 Year
  Sex: Female
  Weight: 65.25 kg

DRUGS (3)
  1. CIPRO [Suspect]
     Active Substance: CIPROFLOXACIN HYDROCHLORIDE
     Indication: Staphylococcal infection
     Dosage: OTHER QUANTITY : 1 TABLET(S);?FREQUENCY : TWICE A DAY;?
     Route: 048
     Dates: start: 20231203, end: 20231231
  2. LEVOTHYROXINE [Concomitant]
     Active Substance: LEVOTHYROXINE
  3. VITAMINS [Concomitant]
     Active Substance: VITAMINS

REACTIONS (9)
  - Product communication issue [None]
  - Muscular weakness [None]
  - Movement disorder [None]
  - Muscle spasms [None]
  - Muscle spasms [None]
  - Prescribed overdose [None]
  - Pain in extremity [None]
  - Neuropathy peripheral [None]
  - Incorrect product administration duration [None]

NARRATIVE: CASE EVENT DATE: 20240215
